FAERS Safety Report 9370017 (Version 2)
Quarter: 2013Q3

REPORT INFORMATION
  Report Type: Report from Study
  Country: US (occurrence: US)
  Receive Date: 20130626
  Receipt Date: 20130705
  Transmission Date: 20140515
  Serious: Yes (Hospitalization)
  Sender: FDA-Public Use
  Company Number: US-ACTELION-A-NJ2013-84910

PATIENT
  Age: 60 Year
  Sex: Male

DRUGS (3)
  1. VELETRI [Suspect]
     Indication: PORTOPULMONARY HYPERTENSION
     Dosage: 6.39 NG/KG, PER MIN
     Route: 041
     Dates: start: 20130615
  2. VENTAVIS [Concomitant]
     Indication: PULMONARY ARTERIAL HYPERTENSION
     Dosage: UNK
     Route: 055
     Dates: end: 201305
  3. SILDENAFIL [Concomitant]

REACTIONS (6)
  - Cerebrovascular accident [Unknown]
  - Hemiplegia [Unknown]
  - Unresponsive to stimuli [Unknown]
  - Air embolism [Unknown]
  - Mechanical ventilation [Unknown]
  - Wrong technique in drug usage process [Unknown]
